FAERS Safety Report 4511095-9 (Version None)
Quarter: 2004Q4

REPORT INFORMATION
  Report Type: 
  Country: None (occurrence: None)
  Receive Date: 20041015
  Receipt Date: 20040108
  Transmission Date: 20050328
  Serious: Yes (Other)
  Sender: FDA-Public Use
  Company Number: 2004001691

PATIENT
  Sex: Male
  Weight: 72.5755 kg

DRUGS (3)
  1. NEURONTIN [Suspect]
     Indication: POST-TRAUMATIC STRESS DISORDER
     Dosage: 300 MG (DAILY), ORAL
     Route: 048
     Dates: start: 20021201
  2. EFFEXOR [Concomitant]
  3. DIAZEPAM [Concomitant]

REACTIONS (3)
  - AMNESIA [None]
  - SKELETAL INJURY [None]
  - SUICIDE ATTEMPT [None]
